FAERS Safety Report 6730300-1 (Version None)
Quarter: 2010Q2

REPORT INFORMATION
  Report Type: 
  Country: None (occurrence: None)
  Receive Date: 20100513
  Receipt Date: 20100513
  Transmission Date: 20101027
  Serious: Yes (Other)
  Sender: FDA-Public Use
  Company Number: US200912-0079-1

PATIENT
  Sex: Female

DRUGS (1)
  1. LYMPHAZURIN [Suspect]
     Dosage: THROUGH THE BREAST
     Dates: end: 20091202

REACTIONS (1)
  - HYPOTENSION [None]
